FAERS Safety Report 9321692 (Version 1)
Quarter: 2013Q2

REPORT INFORMATION
  Report Type: Spontaneous
  Country: US (occurrence: US)
  Receive Date: 20130531
  Receipt Date: 20130531
  Transmission Date: 20140414
  Serious: No
  Sender: FDA-Public Use
  Company Number: US-JNJFOC-20130521518

PATIENT
  Sex: Male
  Weight: 72.58 kg

DRUGS (4)
  1. DURAGESIC [Suspect]
     Indication: BACK PAIN
     Route: 062
  2. VICODIN [Concomitant]
     Route: 065
  3. LEXAPRO [Concomitant]
     Indication: NERVOUSNESS
     Route: 065
  4. LEXAPRO [Concomitant]
     Indication: DEPRESSION
     Route: 065

REACTIONS (4)
  - Hypersensitivity [Not Recovered/Not Resolved]
  - Skin haemorrhage [Recovered/Resolved]
  - Product quality issue [Unknown]
  - Wrong technique in drug usage process [Unknown]
